FAERS Safety Report 5937220-0 (Version None)
Quarter: 2008Q4

REPORT INFORMATION
  Report Type: 
  Country: None (occurrence: None)
  Receive Date: 20081031
  Receipt Date: 20081023
  Transmission Date: 20090506
  Serious: Yes (Hospitalization, Other)
  Sender: FDA-Public Use
  Company Number: US-NOVOPROD-280672

PATIENT
  Sex: Male
  Weight: 65.7 kg

DRUGS (4)
  1. NOVOSEVEN [Suspect]
     Indication: LIMB INJURY
     Dosage: 6 MG, UNK
     Route: 042
     Dates: end: 20081010
  2. NOVOSEVEN [Suspect]
     Dosage: 6 MG Q2H
     Route: 042
     Dates: start: 20081010, end: 20081018
  3. NOVOSEVEN [Suspect]
     Dosage: 6 MG Q4H
     Route: 042
     Dates: start: 20081018, end: 20081019
  4. NOVOSEVEN [Suspect]
     Dosage: 6 MG Q 6H
     Route: 042
     Dates: start: 20081019, end: 20081020

REACTIONS (2)
  - COMPARTMENT SYNDROME [None]
  - DRUG INEFFECTIVE [None]
